FAERS Safety Report 8610945-4 (Version None)
Quarter: 2012Q3

REPORT INFORMATION
  Report Type: 
  Country: None (occurrence: None)
  Receive Date: 20120822
  Receipt Date: 20120815
  Transmission Date: 20120928
  Serious: Yes (Other)
  Sender: FDA-Public Use
  Company Number: PHHY2012BR054423

PATIENT
  Sex: Female

DRUGS (3)
  1. DIOVAN HCT [Suspect]
     Dosage: 1 DF(VALS 160 MG AND 12.5 MG HCTZ), QD
     Route: 048
     Dates: start: 20120620
  2. DIOVAN HCT [Suspect]
     Indication: HYPERTENSION
     Dosage: 1 DF(VALS 320 MG AND HCTZ12.5 MG),QD
     Route: 048
     Dates: end: 20120620
  3. GLUCOSAMINE SULFATE W/CHONDROITIN [Concomitant]
     Indication: OSTEOARTHRITIS
     Dosage: 1 DF, QD
     Route: 048

REACTIONS (4)
  - OSTEOARTHRITIS [None]
  - BLOOD PRESSURE DECREASED [None]
  - FALL [None]
  - SYNCOPE [None]
